FAERS Safety Report 8256301-2 (Version None)
Quarter: 2012Q2

REPORT INFORMATION
  Report Type: 
  Country: None (occurrence: None)
  Receive Date: 20120403
  Receipt Date: 20120327
  Transmission Date: 20120825
  Serious: Yes (Other)
  Sender: FDA-Public Use
  Company Number: US-RB-036875-12

PATIENT
  Age: 52 Year
  Sex: Female

DRUGS (1)
  1. MUCINEX [Suspect]
     Indication: PRODUCT USED FOR UNKNOWN INDICATION
     Dosage: 02.2012 2 DIFFERENT OCCASIONS. SPRAYED INTO EACH NOSTRIL ONCE.
     Route: 045
     Dates: start: 20120201

REACTIONS (1)
  - EPISTAXIS [None]
